FAERS Safety Report 11778071 (Version 3)
Quarter: 2018Q2

REPORT INFORMATION
  Report Type: Report from Study
  Country: US (occurrence: US)
  Receive Date: 20151125
  Receipt Date: 20180420
  Transmission Date: 20180711
  Serious: Yes (Hospitalization)
  Sender: FDA-Public Use
  Company Number: US-PFIZER INC-2015394486

PATIENT
  Age: 53 Year
  Sex: Male
  Weight: 125 kg

DRUGS (15)
  1. PANTOPRAZOLE [Concomitant]
     Active Substance: PANTOPRAZOLE
     Indication: GASTROOESOPHAGEAL REFLUX DISEASE
     Dosage: UNK
     Route: 048
     Dates: start: 201410
  2. OXYCODONE [Concomitant]
     Active Substance: OXYCODONE
     Indication: CHEST PAIN
     Dosage: UNK
     Route: 048
     Dates: start: 201410
  3. ZOLPIDEM [Concomitant]
     Active Substance: ZOLPIDEM\ZOLPIDEM TARTRATE
     Indication: INSOMNIA
     Dosage: UNK
     Route: 048
     Dates: start: 201502
  4. LOPERAMIDE [Concomitant]
     Active Substance: LOPERAMIDE
     Indication: DIARRHOEA
     Dosage: UNK
     Route: 048
     Dates: start: 201410
  5. DIAZEPAM. [Concomitant]
     Active Substance: DIAZEPAM
  6. ATROPINE/DIPHENOXYLATE [Concomitant]
  7. AXITINIB [Suspect]
     Active Substance: AXITINIB
     Indication: METASTATIC RENAL CELL CARCINOMA
     Dosage: 5 MG, CYCLIC (TWICE DAILY 28 DAY CYCLES)
     Route: 048
     Dates: start: 20151022, end: 20151109
  8. ALPRAZOLAM. [Concomitant]
     Active Substance: ALPRAZOLAM
  9. FLUTICASONE. [Concomitant]
     Active Substance: FLUTICASONE
  10. NYSTATIN. [Concomitant]
     Active Substance: NYSTATIN
     Route: 061
  11. MARY^S MAGIC MOUTHWASH [Concomitant]
     Indication: MUCOSAL INFLAMMATION
     Dosage: UNK
     Route: 048
     Dates: start: 201412
  12. ALBUTEROL /00139501/ [Concomitant]
     Active Substance: ALBUTEROL
  13. AXITINIB [Suspect]
     Active Substance: AXITINIB
     Dosage: 3 MG, CYCLIC (TWICE DAILY 28 DAY CYCLES)
     Route: 048
     Dates: start: 20151124, end: 20151211
  14. LISINOPRIL. [Concomitant]
     Active Substance: LISINOPRIL
     Indication: HYPERTENSION
     Dosage: UNK
     Dates: start: 201410
  15. PROCHLORPERAZINE. [Concomitant]
     Active Substance: PROCHLORPERAZINE
     Indication: NAUSEA
     Dosage: UNK
     Route: 048
     Dates: start: 201412

REACTIONS (1)
  - Abdominal pain [Recovered/Resolved]

NARRATIVE: CASE EVENT DATE: 20151112
